FAERS Safety Report 7279062-2 (Version None)
Quarter: 2011Q1

REPORT INFORMATION
  Report Type: 
  Country: None (occurrence: None)
  Receive Date: 20110207
  Receipt Date: 20110131
  Transmission Date: 20110831
  Serious: Yes (Death, Other)
  Sender: FDA-Public Use
  Company Number: PHHY2009DK57984

PATIENT
  Sex: Male

DRUGS (2)
  1. ZOMETA [Suspect]
     Indication: METASTASES TO BONE
     Dosage: 4 MG EVERY 3 WEEKS
     Dates: start: 20080430, end: 20081009
  2. TAXOTERE [Concomitant]
     Dosage: 150 MG 20 JUN 2006 TO 28 NOV 2006 IN 8 SERIES
     Route: 042
     Dates: start: 20060620, end: 20061128

REACTIONS (3)
  - DEATH [None]
  - OSTEONECROSIS OF JAW [None]
  - BONE DISORDER [None]
